FAERS Safety Report 7655274-0 (Version None)
Quarter: 2011Q3

REPORT INFORMATION
  Report Type: 
  Country: None (occurrence: None)
  Receive Date: 20110801
  Receipt Date: 20110714
  Transmission Date: 20111222
  Serious: Yes (Other)
  Sender: FDA-Public Use
  Company Number: 2011MA008868

PATIENT
  Age: 44 Year
  Sex: Female

DRUGS (3)
  1. TRASTUZUMAB (TRASTUZUMAB) [Suspect]
     Indication: BREAST CANCER STAGE III
     Dosage: UNK UNK
  2. EPIRUBICIN HYDROCHLORIDE [Suspect]
     Indication: BREAST CANCER STAGE III
     Dosage: ;UNK IV
     Route: 042
  3. DOCETAXEL [Suspect]
     Indication: BREAST CANCER STAGE III
     Dosage: ;UKN;UKN

REACTIONS (10)
  - ASPARTATE AMINOTRANSFERASE INCREASED [None]
  - ASTHENIA [None]
  - ALANINE AMINOTRANSFERASE INCREASED [None]
  - ILL-DEFINED DISORDER [None]
  - JAUNDICE [None]
  - NODULAR REGENERATIVE HYPERPLASIA [None]
  - METASTASES TO LIVER [None]
  - HEPATIC NEOPLASM [None]
  - ASCITES [None]
  - BLOOD BILIRUBIN INCREASED [None]
